FAERS Safety Report 24621083 (Version 8)
Quarter: 2025Q3

REPORT INFORMATION
  Report Type: Spontaneous
  Country: US (occurrence: US)
  Receive Date: 20241114
  Receipt Date: 20250819
  Transmission Date: 20251020
  Serious: Yes (Other)
  Sender: TRAVERE THERAPEUTICS
  Company Number: US-TRAVERE-2024TVT01145

PATIENT
  Age: 47 Year
  Sex: Female
  Weight: 92.08 kg

DRUGS (10)
  1. FILSPARI [Suspect]
     Active Substance: SPARSENTAN
     Indication: IgA nephropathy
     Route: 048
     Dates: end: 202410
  2. FILSPARI [Suspect]
     Active Substance: SPARSENTAN
     Indication: Blood immunoglobulin A
     Route: 048
     Dates: start: 20250120
  3. FILSPARI [Suspect]
     Active Substance: SPARSENTAN
     Route: 048
     Dates: start: 20250331
  4. COREG [Concomitant]
     Active Substance: CARVEDILOL
  5. CLONIDINE [Concomitant]
     Active Substance: CLONIDINE
  6. DOXYCYCLINE [Concomitant]
     Active Substance: DOXYCYCLINE
  7. NIFEDIPINE [Concomitant]
     Active Substance: NIFEDIPINE
  8. HYDROXYZINE [Concomitant]
     Active Substance: HYDROXYZINE HYDROCHLORIDE
  9. BUMETANIDE [Concomitant]
     Active Substance: BUMETANIDE
  10. BUMEX [Concomitant]
     Active Substance: BUMETANIDE

REACTIONS (15)
  - Accident [Unknown]
  - Pain [None]
  - Injury [Unknown]
  - Spinal column injury [Unknown]
  - Intervertebral disc protrusion [Unknown]
  - Hypotension [Recovered/Resolved]
  - Sciatica [Unknown]
  - Peripheral swelling [None]
  - Joint swelling [None]
  - Concussion [Unknown]
  - Blood pressure increased [Recovered/Resolved]
  - Oedema [Unknown]
  - Blood potassium increased [Unknown]
  - Blood creatinine increased [Unknown]
  - Product dose omission issue [Unknown]

NARRATIVE: CASE EVENT DATE: 20241001
